FAERS Safety Report 14505522 (Version 1)
Quarter: 2018Q1

REPORT INFORMATION
  Report Type: Spontaneous
  Country: FR (occurrence: FR)
  Receive Date: 20180208
  Receipt Date: 20180208
  Transmission Date: 20180509
  Serious: Yes (Hospitalization)
  Sender: FDA-Public Use
  Company Number: FR-B.I. PHARMACEUTICALS,INC./RIDGEFIELD-2018-BI-007529

PATIENT
  Age: 60 Year
  Sex: Male
  Weight: 86 kg

DRUGS (1)
  1. TAMSULOSINA [Suspect]
     Active Substance: TAMSULOSIN HYDROCHLORIDE
     Indication: BENIGN PROSTATIC HYPERPLASIA
     Route: 048
     Dates: start: 20120401, end: 20171002

REACTIONS (1)
  - Angina pectoris [Recovered/Resolved with Sequelae]

NARRATIVE: CASE EVENT DATE: 20170401
